FAERS Safety Report 7134398-0 (Version None)
Quarter: 2010Q4

REPORT INFORMATION
  Report Type: 
  Country: None (occurrence: None)
  Receive Date: 20101203
  Receipt Date: 20101119
  Transmission Date: 20110411
  Serious: Yes (Hospitalization, Other)
  Sender: FDA-Public Use
  Company Number: PHHY2010BR26270

PATIENT
  Age: 70 Year
  Sex: Female
  Weight: 65 kg

DRUGS (3)
  1. DIOVAN AMLO FIX [Suspect]
     Indication: HYPERTENSION
     Dosage: ONE TABLET DAILY
     Route: 048
     Dates: start: 20070101
  2. METFORMIN [Concomitant]
     Indication: DIABETES MELLITUS
     Dosage: ONE TABLET 3 TIMES DAILY
     Route: 048
  3. ATENSINA [Concomitant]
     Indication: HYPERTENSION
     Dosage: ONE TABLET AT NIGHT
     Route: 048

REACTIONS (6)
  - ARTERIAL CATHETERISATION [None]
  - ARTERIAL OCCLUSIVE DISEASE [None]
  - CORNEAL TRANSPLANT [None]
  - DRUG INEFFECTIVE [None]
  - INTRAOCULAR PRESSURE INCREASED [None]
  - VASCULAR GRAFT [None]
